FAERS Safety Report 10230894 (Version 1)
Quarter: 2014Q2

REPORT INFORMATION
  Report Type: Spontaneous
  Country: US (occurrence: None)
  Receive Date: 20140610
  Receipt Date: 20140610
  Transmission Date: 20141212
  Serious: No
  Sender: FDA-Public Use
  Company Number: None

PATIENT
  Age: 75 Year
  Sex: Female
  Weight: 59.88 kg

DRUGS (1)
  1. TETRACYCLINE [Suspect]
     Indication: TROPICAL SPRUE
     Dosage: 1 CAPSULE
     Route: 048
     Dates: start: 20140528, end: 20140608

REACTIONS (4)
  - Flatulence [None]
  - Abdominal distension [None]
  - Pain [None]
  - Discomfort [None]
